FAERS Safety Report 25811984 (Version 3)
Quarter: 2025Q4

REPORT INFORMATION
  Report Type: Spontaneous
  Country: US (occurrence: US)
  Receive Date: 20250917
  Receipt Date: 20251211
  Transmission Date: 20260118
  Serious: No
  Sender: PFIZER
  Company Number: US-PFIZER INC-202500183188

PATIENT
  Age: 63 Year
  Sex: Female

DRUGS (2)
  1. IBRANCE [Suspect]
     Active Substance: PALBOCICLIB
     Indication: Breast cancer female
     Dosage: 125 MG, CYCLIC (DAILY BY MOUTH ON DAYS 1 THROUGH 21 OF EVERY 28 DAY CYCLE)
     Route: 048
     Dates: start: 2025
  2. IBRANCE [Suspect]
     Active Substance: PALBOCICLIB
     Dosage: TAKE 1 TABLET DAILY ON DAYS 1 THROUGH 21 OF EVERY 28 DAY CYCLE (3 WEEKS ON AND 1 WEEK OFF)
     Dates: start: 2025

REACTIONS (6)
  - Abdominal pain [Unknown]
  - Discomfort [Unknown]
  - Nausea [Unknown]
  - Full blood count decreased [Unknown]
  - Blister [Not Recovered/Not Resolved]
  - Nasopharyngitis [Recovering/Resolving]

NARRATIVE: CASE EVENT DATE: 20250101
